FAERS Safety Report 6040899-9 (Version None)
Quarter: 2009Q1

REPORT INFORMATION
  Report Type: 
  Country: None (occurrence: None)
  Receive Date: 20090116
  Receipt Date: 20080624
  Transmission Date: 20090719
  Serious: No
  Sender: FDA-Public Use
  Company Number: US-BRISTOL-MYERS SQUIBB COMPANY-14239180

PATIENT

DRUGS (3)
  1. ABILIFY [Suspect]
  2. SEROQUEL [Suspect]
  3. VYVANSE [Concomitant]

REACTIONS (2)
  - INSOMNIA [None]
  - TIC [None]
